FAERS Safety Report 9133659 (Version 1)
Quarter: 2013Q1

REPORT INFORMATION
  Report Type: Spontaneous
  Country: BR (occurrence: BR)
  Receive Date: 20130302
  Receipt Date: 20130302
  Transmission Date: 20140127
  Serious: Yes (Other)
  Sender: FDA-Public Use
  Company Number: BR-ACCORD-015566

PATIENT
  Age: 42 Year
  Sex: Female
  Weight: 70 kg

DRUGS (5)
  1. RANITIDINE [Concomitant]
     Route: 042
     Dates: start: 20121128, end: 20121128
  2. PACLITAXEL [Suspect]
     Indication: CHEMOTHERAPY
     Dosage: DURING THIRD CYCLE DOSE REDUCED TO 130MG/M2 ON 19-DEC-12.
     Route: 042
     Dates: start: 20121128
  3. DIPHENHYDRAMINE [Concomitant]
     Route: 042
     Dates: start: 20121128, end: 20121128
  4. ONDANSETRON [Concomitant]
     Route: 042
     Dates: start: 20121128, end: 20121128
  5. DEXAMETHASONE [Concomitant]
     Route: 042
     Dates: start: 20121128, end: 20121128

REACTIONS (4)
  - Erythema [Recovered/Resolved]
  - Back pain [Recovered/Resolved]
  - Aspartate aminotransferase increased [Recovered/Resolved]
  - Alanine aminotransferase increased [Recovered/Resolved]
